FAERS Safety Report 23618082 (Version 1)
Quarter: 2024Q1

REPORT INFORMATION
  Report Type: Spontaneous
  Country: US (occurrence: US)
  Receive Date: 20240311
  Receipt Date: 20240311
  Transmission Date: 20240410
  Serious: No
  Sender: FDA-Public Use
  Company Number: US-PFIZER INC-202400057501

PATIENT
  Age: 82 Year
  Sex: Male
  Weight: 76.66 kg

DRUGS (2)
  1. TESTOSTERONE CYPIONATE [Suspect]
     Active Substance: TESTOSTERONE CYPIONATE
     Dosage: 3.5ML MONTHLY INTRAMUSCULAR IN GLUTEAL MUSCLE
     Route: 030
     Dates: start: 2022
  2. TESTOSTERONE CYPIONATE [Suspect]
     Active Substance: TESTOSTERONE CYPIONATE
     Dosage: 1ML VIAL; 14 BOTTLES EVERY 3 MONTHS

REACTIONS (1)
  - Musculoskeletal pain [Unknown]
